FAERS Safety Report 4941377-8 (Version None)
Quarter: 2006Q1

REPORT INFORMATION
  Report Type: 
  Country: None (occurrence: None)
  Receive Date: 20060313
  Receipt Date: 20060227
  Transmission Date: 20060701
  Serious: Yes (Hospitalization)
  Sender: FDA-Public Use
  Company Number: US-MERCK-0603USA00426

PATIENT
  Age: 65 Year
  Sex: Male
  Weight: 75 kg

DRUGS (2)
  1. VIOXX [Suspect]
     Indication: BACK PAIN
     Route: 048
     Dates: start: 20010701, end: 20020901
  2. ASPIRIN [Concomitant]
     Route: 065

REACTIONS (3)
  - ACUTE CORONARY SYNDROME [None]
  - ANXIETY [None]
  - MYOCARDIAL INFARCTION [None]
